FAERS Safety Report 9379598 (Version 2)
Quarter: 2013Q3

REPORT INFORMATION
  Report Type: Report from Study
  Country: AR (occurrence: AR)
  Receive Date: 20130702
  Receipt Date: 20130906
  Transmission Date: 20140515
  Serious: Yes (Other)
  Sender: FDA-Public Use
  Company Number: PHHY2013AR067843

PATIENT
  Sex: Female

DRUGS (1)
  1. TRILEPTAL [Suspect]
     Indication: CONVULSION
     Dosage: 3 DF (600MG), DAILY
     Route: 048
     Dates: start: 1996

REACTIONS (4)
  - Nodule [Recovering/Resolving]
  - Convulsion [Recovering/Resolving]
  - Dysphonia [Recovering/Resolving]
  - Dry throat [Recovering/Resolving]
